FAERS Safety Report 5041230-8 (Version None)
Quarter: 2006Q3

REPORT INFORMATION
  Report Type: 
  Country: None (occurrence: None)
  Receive Date: 20060703
  Receipt Date: 20060627
  Transmission Date: 20061208
  Serious: Yes (Death, Other)
  Sender: FDA-Public Use
  Company Number: US-GLAXOSMITHKLINE-B0429286A

PATIENT

DRUGS (5)
  1. MELPHALAN [Suspect]
     Indication: STEM CELL TRANSPLANT
     Dosage: 140MGM2 SINGLE DOSE
     Route: 065
  2. GEMTUZUMAB OZOGAMICIN [Suspect]
     Indication: STEM CELL TRANSPLANT
     Dosage: 2MGM2 SINGLE DOSE
     Route: 065
  3. FLUDARABINE [Suspect]
     Indication: STEM CELL TRANSPLANT
     Dosage: 30MGM2 UNKNOWN
     Route: 065
  4. TACROLIMUS [Concomitant]
     Indication: PROPHYLAXIS AGAINST TRANSPLANT REJECTION
     Route: 065
  5. METHOTREXATE [Concomitant]
     Indication: PROPHYLAXIS AGAINST TRANSPLANT REJECTION
     Route: 065

REACTIONS (4)
  - HAEMOLYTIC URAEMIC SYNDROME [None]
  - PNEUMONIA [None]
  - RENAL FAILURE [None]
  - THROMBOTIC THROMBOCYTOPENIC PURPURA [None]
